FAERS Safety Report 13955915 (Version 1)
Quarter: 2017Q3

REPORT INFORMATION
  Report Type: Spontaneous
  Country: US (occurrence: US)
  Receive Date: 20170911
  Receipt Date: 20170911
  Transmission Date: 20171128
  Serious: No
  Sender: FDA-Public Use
  Company Number: US-SUNOVION-2017SUN003876

PATIENT
  Age: 38 Year
  Sex: Male

DRUGS (2)
  1. LATUDA [Suspect]
     Active Substance: LURASIDONE HYDROCHLORIDE
     Indication: DEPRESSION
     Dosage: 20 MG, UNK
     Route: 048
  2. LITHIUM [Concomitant]
     Indication: DEPRESSION
     Dosage: UNK
     Route: 065

REACTIONS (2)
  - Body temperature increased [Unknown]
  - Off label use [Unknown]
